FAERS Safety Report 5772749-X (Version None)
Quarter: 2008Q2

REPORT INFORMATION
  Report Type: 
  Country: None (occurrence: None)
  Receive Date: 20080613
  Receipt Date: 20080603
  Transmission Date: 20081010
  Serious: Yes (Other)
  Sender: FDA-Public Use
  Company Number: GB-PFIZER INC-2008036205

PATIENT
  Age: 44 Year
  Sex: Male

DRUGS (2)
  1. EPANUTIN INFATABS [Suspect]
     Indication: CONVULSION
     Route: 048
  2. ALL OTHER THERAPEUTIC PRODUCTS [Concomitant]

REACTIONS (4)
  - DIZZINESS [None]
  - NEOPLASM RECURRENCE [None]
  - SURGERY [None]
  - TREMOR [None]
